FAERS Safety Report 14374911 (Version 1)
Quarter: 2018Q1

REPORT INFORMATION
  Report Type: Spontaneous
  Country: FR (occurrence: FR)
  Receive Date: 20180111
  Receipt Date: 20180111
  Transmission Date: 20180509
  Serious: Yes (Hospitalization)
  Sender: FDA-Public Use
  Company Number: FR-AUROBINDO-AUR-APL-2018-001270

PATIENT
  Age: 67 Year
  Sex: Female

DRUGS (11)
  1. FORMOTEROL FUMARATE DIHYDRATE [Concomitant]
     Active Substance: FORMOTEROL FUMARATE DIHYDRATE
     Dosage: ()
     Route: 055
  2. FUROSEMIDE. [Concomitant]
     Active Substance: FUROSEMIDE
  3. DIFFU K [Concomitant]
     Active Substance: POTASSIUM CHLORIDE
  4. TRACLEER [Concomitant]
     Active Substance: BOSENTAN
     Dosage: ()
     Route: 048
  5. PREDNISONE. [Suspect]
     Active Substance: PREDNISONE
  6. GENTALLINE [Suspect]
     Active Substance: GENTAMICIN SULFATE
     Indication: GASTROINTESTINAL INFECTION
     Dosage: 120 MG, ONCE A DAY
     Route: 042
     Dates: start: 20170823
  7. AZITHROMYCINE [Suspect]
     Active Substance: AZITHROMYCIN DIHYDRATE
     Indication: GASTROINTESTINAL INFECTION
     Dosage: ()
     Route: 048
     Dates: start: 20170831
  8. TAMOXIFENE CITRATE [Concomitant]
     Active Substance: TAMOXIFEN CITRATE
     Dosage: ()
     Route: 048
  9. CELESTAMINE [Suspect]
     Active Substance: BETAMETHASONE\DEXCHLORPHENIRAMINE MALEATE
     Indication: PRURITUS
     Dosage: ()
     Route: 048
     Dates: start: 20171125
  10. ATOVAQUONE. [Concomitant]
     Active Substance: ATOVAQUONE
  11. INEXIUM                            /01479302/ [Concomitant]
     Active Substance: ESOMEPRAZOLE MAGNESIUM
     Dosage: ()
     Route: 048

REACTIONS (3)
  - Pruritus [Recovering/Resolving]
  - Erythema [Recovering/Resolving]
  - Rash macular [Recovering/Resolving]

NARRATIVE: CASE EVENT DATE: 20171120
